FAERS Safety Report 5643269-8 (Version None)
Quarter: 2008Q1

REPORT INFORMATION
  Report Type: 
  Country: None (occurrence: None)
  Receive Date: 20080228
  Receipt Date: 20080221
  Transmission Date: 20080703
  Serious: Yes (Disabling)
  Sender: FDA-Public Use
  Company Number: GB-ROCHE-548902

PATIENT
  Age: 64 Year
  Sex: Female
  Weight: 59 kg

DRUGS (5)
  1. BONIVA [Suspect]
     Indication: OSTEOPOROSIS
     Route: 065
     Dates: start: 20051008, end: 20061101
  2. FOSAMAX [Suspect]
     Indication: OSTEOPOROSIS
     Route: 048
     Dates: start: 20040327, end: 20040424
  3. FOSAMAX [Suspect]
     Route: 048
     Dates: start: 20040513, end: 20051001
  4. CALCICHEW D3 [Concomitant]
     Indication: OSTEOPOROSIS
     Route: 065
     Dates: start: 20051001
  5. LEVOTHYROXINE SODIUM [Concomitant]
     Indication: HYPOTHYROIDISM
     Route: 065
     Dates: start: 20000501

REACTIONS (3)
  - FACIAL PAIN [None]
  - HEADACHE [None]
  - MACULAR HOLE [None]
